FAERS Safety Report 7408189-7 (Version None)
Quarter: 2011Q2

REPORT INFORMATION
  Report Type: 
  Country: None (occurrence: None)
  Receive Date: 20110412
  Receipt Date: 20101029
  Transmission Date: 20111010
  Serious: Yes (Life-Threatening, Hospitalization, Other)
  Sender: FDA-Public Use
  Company Number: US-BAYER-201027579NA

PATIENT
  Age: 37 Year
  Sex: Female
  Weight: 72 kg

DRUGS (9)
  1. YAZ [Suspect]
     Indication: CONTRACEPTION
     Dosage: UNK
     Dates: start: 20070901, end: 20080601
  2. SYNTHROID [Concomitant]
     Indication: HYPOTHYROIDISM
     Dosage: 50 MCG/24HR, QD
     Route: 048
  3. DICLOFENAC POTASSIUM [Concomitant]
     Indication: MIGRAINE
     Dosage: 50 MG, UNK
     Route: 048
  4. MAXALT [Concomitant]
  5. DARVOCET [Concomitant]
     Indication: PAIN
     Dosage: ONE AS NEEDED, PRN
     Route: 048
  6. KEFLEX [Concomitant]
     Indication: INFECTION
     Dosage: 500 MG, BID
     Route: 048
     Dates: start: 20080601, end: 20080703
  7. VICODIN [Concomitant]
     Indication: PROCEDURAL PAIN
     Dosage: 5/500 1-2 TAB QID FOR PAIN
     Dates: start: 20080601, end: 20080703
  8. AXERT [Concomitant]
     Indication: MIGRAINE
     Dosage: 12.5 MG, PRN
     Route: 048
  9. AZITHROMYCIN [Concomitant]

REACTIONS (7)
  - BACK PAIN [None]
  - DEEP VEIN THROMBOSIS [None]
  - BREAST CANCER [None]
  - PULMONARY EMBOLISM [None]
  - CHEST PAIN [None]
  - DYSPNOEA [None]
  - MENTAL DISORDER [None]
